FAERS Safety Report 10329063 (Version 1)
Quarter: 2014Q3

REPORT INFORMATION
  Report Type: Spontaneous
  Country: BR (occurrence: BR)
  Receive Date: 20140721
  Receipt Date: 20140721
  Transmission Date: 20150326
  Serious: Yes (Death, Hospitalization, Other)
  Sender: FDA-Public Use
  Company Number: PHHY2014BR088720

PATIENT
  Sex: Male
  Weight: 85 kg

DRUGS (2)
  1. DIOVAN [Suspect]
     Active Substance: VALSARTAN
     Indication: HYPERTENSION
     Dosage: 100 MG, DAILY (AS REPORTED)
     Route: 048
  2. DIOVAN [Suspect]
     Active Substance: VALSARTAN
     Indication: CARDIAC DISORDER

REACTIONS (4)
  - Cardiac arrest [Fatal]
  - Pulmonary oedema [Not Recovered/Not Resolved]
  - Cardiac disorder [Unknown]
  - Renal disorder [Not Recovered/Not Resolved]
